FAERS Safety Report 19966198 (Version 1)
Quarter: 2021Q4

REPORT INFORMATION
  Report Type: Spontaneous
  Country: AU (occurrence: AU)
  Receive Date: 20211019
  Receipt Date: 20211019
  Transmission Date: 20220303
  Serious: Yes (Other)
  Sender: FDA-Public Use
  Company Number: AU-SA-SAC20211012000643

PATIENT
  Age: 44 Year
  Sex: Male

DRUGS (3)
  1. LEMTRADA [Suspect]
     Active Substance: ALEMTUZUMAB
     Indication: Multiple sclerosis
     Dosage: UNK
     Dates: start: 201507
  2. LEMTRADA [Suspect]
     Active Substance: ALEMTUZUMAB
     Dosage: UNK
     Dates: start: 201607
  3. LEMTRADA [Suspect]
     Active Substance: ALEMTUZUMAB
     Dosage: UNK
     Dates: start: 201812

REACTIONS (22)
  - Immunoglobulin G4 related disease [Unknown]
  - Lymphadenopathy [Unknown]
  - Parotid gland enlargement [Unknown]
  - Multiple sclerosis relapse [Unknown]
  - Cognitive disorder [Unknown]
  - Ataxia [Unknown]
  - Bladder disorder [Unknown]
  - Hypoaesthesia [Unknown]
  - Trigeminal neuralgia [Unknown]
  - Fatigue [Unknown]
  - Muscle spasticity [Unknown]
  - Gait disturbance [Unknown]
  - Muscular weakness [Unknown]
  - Dysgraphia [Unknown]
  - Depression [Unknown]
  - Back pain [Unknown]
  - Intervertebral disc degeneration [Unknown]
  - Patella fracture [Unknown]
  - Fall [Unknown]
  - Decreased activity [Unknown]
  - Weight increased [Unknown]
  - Gastrooesophageal reflux disease [Unknown]

NARRATIVE: CASE EVENT DATE: 20200101
